FAERS Safety Report 23667919 (Version 2)
Quarter: 2024Q2

REPORT INFORMATION
  Report Type: Spontaneous
  Country: JP (occurrence: JP)
  Receive Date: 20240325
  Receipt Date: 20240402
  Transmission Date: 20240715
  Serious: Yes (Other)
  Sender: FDA-Public Use
  Company Number: JP-002147023-NVSJ2024JP003547

PATIENT
  Age: 86 Year
  Sex: Male

DRUGS (2)
  1. EXELON PATCH [Suspect]
     Active Substance: RIVASTIGMINE
     Dosage: PATCH10(CM2), QD (BEFORE BREAKFAST)
     Route: 062
  2. EXELON PATCH [Suspect]
     Active Substance: RIVASTIGMINE
     Indication: Dementia
     Dosage: PATCH2.5(CM2), QD (BEFORE BREAKFAST)
     Route: 062

REACTIONS (2)
  - Dementia [Unknown]
  - Product use complaint [Unknown]
